FAERS Safety Report 6011332-8 (Version None)
Quarter: 2008Q4

REPORT INFORMATION
  Report Type: 
  Country: None (occurrence: None)
  Receive Date: 20081218
  Receipt Date: 20081212
  Transmission Date: 20090506
  Serious: Yes (Death)
  Sender: FDA-Public Use
  Company Number: CN-ROCHE-602698

PATIENT

DRUGS (2)
  1. MYCOPHENOLATE MOFETIL [Suspect]
     Indication: RENAL TRANSPLANT
     Route: 048
  2. CYCLOSPORINE [Concomitant]
     Dosage: BRAND NAME WAS REPORTED AS CYCLOSPORINE-KERUI PHARM. MANUFACTURER WAS REPORTED AS HUA DONG ZHI YAO.

REACTIONS (1)
  - DEATH [None]
